FAERS Safety Report 4878611-9 (Version None)
Quarter: 2006Q1

REPORT INFORMATION
  Report Type: 
  Country: None (occurrence: None)
  Receive Date: 20060110
  Receipt Date: 20060110
  Transmission Date: 20060701
  Serious: Yes (Other)
  Sender: FDA-Public Use
  Company Number: None

PATIENT
  Age: 57 Year
  Sex: Male
  Weight: 96.36 kg

DRUGS (2)
  1. VANCOMYCIN [Suspect]
     Indication: GANGRENE
     Dosage: 1.5GM   Q 24HRS  IV
     Route: 042
     Dates: start: 20051221, end: 20060107
  2. GENTAMICIN [Suspect]
     Dosage: 200MG    Q 24HRS    IV
     Route: 042

REACTIONS (1)
  - BALANCE DISORDER [None]
